FAERS Safety Report 4774748-3 (Version None)
Quarter: 2005Q3

REPORT INFORMATION
  Report Type: 
  Country: None (occurrence: None)
  Receive Date: 20050921
  Receipt Date: 20050913
  Transmission Date: 20060218
  Serious: Yes (Other)
  Sender: FDA-Public Use
  Company Number: GB-GLAXOSMITHKLINE-B0393776A

PATIENT
  Age: 34 Year
  Sex: Male
  Weight: 89.3 kg

DRUGS (3)
  1. ZOFRAN [Suspect]
     Indication: NAUSEA
     Dosage: 4MG UNKNOWN
     Route: 042
     Dates: start: 20050901, end: 20050902
  2. VOLTAROL [Concomitant]
     Indication: PAIN
     Dosage: 50MG PER DAY
     Route: 048
     Dates: start: 20050902
  3. MORPHINE [Concomitant]
     Indication: PAIN
     Dosage: 3MG PER DAY
     Route: 042
     Dates: start: 20050902, end: 20050902

REACTIONS (3)
  - COMA [None]
  - MIOSIS [None]
  - PUPILLARY REFLEX IMPAIRED [None]
